FAERS Safety Report 6269079-9 (Version None)
Quarter: 2009Q3

REPORT INFORMATION
  Report Type: 
  Country: None (occurrence: None)
  Receive Date: 20090715
  Receipt Date: 20090708
  Transmission Date: 20100115
  Serious: Yes (Life-Threatening, Other)
  Sender: FDA-Public Use
  Company Number: AU-PFIZER INC-2009237953

PATIENT
  Age: 57 Year

DRUGS (2)
  1. IDARUBICIN HCL [Suspect]
     Indication: ACUTE MYELOID LEUKAEMIA
     Dosage: 15 MG, DAILY
     Route: 042
     Dates: start: 20090705, end: 20090706
  2. CYTARABINE [Suspect]
     Indication: ACUTE MYELOID LEUKAEMIA
     Dosage: 5.2 G, 2X/DAY
     Route: 042
     Dates: start: 20090705

REACTIONS (2)
  - ACUTE PULMONARY OEDEMA [None]
  - SINUS TACHYCARDIA [None]
